FAERS Safety Report 5179935-0 (Version None)
Quarter: 2006Q4

REPORT INFORMATION
  Report Type: 
  Country: None (occurrence: None)
  Receive Date: 20061211
  Receipt Date: 20061129
  Transmission Date: 20070319
  Serious: Yes (Other)
  Sender: FDA-Public Use
  Company Number: 2006148148

PATIENT
  Age: 11 Year
  Sex: Female

DRUGS (14)
  1. SOLU-MEDROL [Suspect]
     Dosage: 1 GRAM, INTRAVENOUS
     Route: 042
     Dates: start: 20061120, end: 20061122
  2. SOLDEM 1 (GLUCOSE, SODIUM CHLORIDE, SODIUM LACTATE) [Concomitant]
  3. ROCEPHIN [Concomitant]
  4. SULPYRINE (METAMIZOLE SODIUM) [Concomitant]
  5. ELASPOL (SIVELESTAT) [Concomitant]
  6. MIDAZOLAM HYDROCHLORIDE [Concomitant]
  7. FRAGMIN [Concomitant]
  8. FAMOTIDINE [Concomitant]
  9. MORPHINE [Concomitant]
  10. ANTITHROMBIN III [Concomitant]
  11. NEO-MINOPHAGEN C (GLYCYRRHIZIC ACID, AMMONIUM SALT) [Concomitant]
  12. TATHION (GLUTATHIONE) [Concomitant]
  13. DECADRON [Concomitant]
  14. BOSMIN (EPINEPHRINE HYDROCHLORIDE) [Concomitant]

REACTIONS (2)
  - DELIRIUM [None]
  - HALLUCINATION, VISUAL [None]
